FAERS Safety Report 4700667-4 (Version None)
Quarter: 2005Q2

REPORT INFORMATION
  Report Type: 
  Country: None (occurrence: None)
  Receive Date: 20050627
  Receipt Date: 20050317
  Transmission Date: 20051028
  Serious: Yes (Hospitalization)
  Sender: FDA-Public Use
  Company Number: US-MERCK-0503USA03479

PATIENT
  Age: 55 Year
  Sex: Female
  Weight: 68 kg

DRUGS (28)
  1. VIOXX [Suspect]
     Indication: MUSCLE STRAIN
     Route: 048
     Dates: start: 20010401, end: 20040101
  2. VIOXX [Suspect]
     Indication: ARTHRITIS
     Route: 048
     Dates: start: 20010401, end: 20040101
  3. BUSPAR [Concomitant]
     Route: 065
  4. DESYREL [Concomitant]
     Route: 065
  5. CELEXA [Concomitant]
     Indication: DEPRESSION
     Route: 065
     Dates: start: 19900101
  6. CELEXA [Concomitant]
     Indication: GENERALISED ANXIETY DISORDER
     Route: 065
     Dates: start: 19900101
  7. LEXAPRO [Concomitant]
     Indication: DEPRESSION
     Route: 065
     Dates: start: 19900101
  8. LEXAPRO [Concomitant]
     Indication: PANIC DISORDER
     Route: 065
     Dates: start: 19900101
  9. OGEN [Concomitant]
     Indication: MENOPAUSE
     Route: 065
     Dates: start: 19990101, end: 20040101
  10. PREVACID [Concomitant]
     Indication: DYSPEPSIA
     Route: 065
  11. PREVACID [Concomitant]
     Indication: GASTROOESOPHAGEAL REFLUX DISEASE
     Route: 065
  12. PROTONIX [Concomitant]
     Indication: DYSPEPSIA
     Route: 065
  13. PROTONIX [Concomitant]
     Indication: GASTROOESOPHAGEAL REFLUX DISEASE
     Route: 065
  14. NEXIUM [Concomitant]
     Indication: DYSPEPSIA
     Route: 065
  15. NEXIUM [Concomitant]
     Indication: GASTROOESOPHAGEAL REFLUX DISEASE
     Route: 065
  16. ALLEGRA [Concomitant]
     Indication: HYPERSENSITIVITY
     Route: 065
  17. DYAZIDE [Concomitant]
     Indication: HYPERTENSION
     Route: 065
     Dates: start: 19830101
  18. DYAZIDE [Concomitant]
     Indication: OEDEMA PERIPHERAL
     Route: 065
     Dates: start: 19830101
  19. MIDAMOR [Concomitant]
     Route: 065
     Dates: start: 19830101
  20. ATENOLOL MSD [Concomitant]
     Route: 065
     Dates: start: 19900101
  21. LIPITOR [Concomitant]
     Indication: BLOOD TRIGLYCERIDES INCREASED
     Route: 065
     Dates: start: 20030101, end: 20040101
  22. LIPITOR [Concomitant]
     Indication: BLOOD CHOLESTEROL INCREASED
     Route: 065
     Dates: start: 20030101, end: 20040101
  23. ZELNORM [Concomitant]
     Route: 065
  24. LOTENSIN [Concomitant]
     Indication: HYPERTENSION
     Route: 065
     Dates: start: 20030701, end: 20030901
  25. ESTRADIOL [Concomitant]
     Route: 065
     Dates: start: 19900101, end: 20040101
  26. INDERAL [Concomitant]
     Route: 065
     Dates: start: 19900101
  27. HYDROCHLOROTHIAZIDE [Concomitant]
     Indication: HYPERTENSION
     Route: 065
     Dates: start: 19830101
  28. HYDROCHLOROTHIAZIDE [Concomitant]
     Indication: OEDEMA PERIPHERAL
     Route: 065
     Dates: start: 19830101

REACTIONS (34)
  - ABDOMINAL PAIN [None]
  - ASTHENIA [None]
  - ASTHMA [None]
  - CALCINOSIS [None]
  - CATARACT [None]
  - CEREBROVASCULAR ACCIDENT [None]
  - CONFUSIONAL STATE [None]
  - DIZZINESS [None]
  - DYSARTHRIA [None]
  - DYSPNOEA [None]
  - DYSPNOEA EXERTIONAL [None]
  - EAR DISCOMFORT [None]
  - EAR PAIN [None]
  - ELECTROCARDIOGRAM T WAVE INVERSION [None]
  - HAEMORRHAGE INTRACRANIAL [None]
  - HEADACHE [None]
  - HOT FLUSH [None]
  - HYPERHIDROSIS [None]
  - HYPERTENSION [None]
  - HYPOACUSIS [None]
  - HYPOAESTHESIA [None]
  - INNER EAR DISORDER [None]
  - LABYRINTHITIS [None]
  - MEMORY IMPAIRMENT [None]
  - MITRAL VALVE PROLAPSE [None]
  - MUSCLE SPASMS [None]
  - NASAL CONGESTION [None]
  - PALPITATIONS [None]
  - PARALYSIS [None]
  - SENSORY DISTURBANCE [None]
  - TRANSIENT ISCHAEMIC ATTACK [None]
  - VAGINAL INFECTION [None]
  - VAGINAL MYCOSIS [None]
  - VERTIGO POSITIONAL [None]
